FAERS Safety Report 6499869-9 (Version None)
Quarter: 2009Q4

REPORT INFORMATION
  Report Type: 
  Country: None (occurrence: None)
  Receive Date: 20091214
  Receipt Date: 20091214
  Transmission Date: 20100525
  Serious: Yes (Hospitalization)
  Sender: FDA-Public Use
  Company Number: None

PATIENT
  Age: 54 Year
  Sex: Male
  Weight: 60.91 kg

DRUGS (2)
  1. CETUXIMAB [Suspect]
     Indication: OROPHARYNGEAL CANCER STAGE UNSPECIFIED
     Dosage: 250 MG/M2 WEEKLY IV
     Route: 042
     Dates: start: 20091009, end: 20091111
  2. CISPLATIN [Concomitant]

REACTIONS (5)
  - DEHYDRATION [None]
  - DYSPNOEA EXERTIONAL [None]
  - MYALGIA [None]
  - PNEUMONIA [None]
  - PNEUMONITIS [None]
